FAERS Safety Report 5056963-7 (Version None)
Quarter: 2006Q3

REPORT INFORMATION
  Report Type: 
  Country: None (occurrence: None)
  Receive Date: 20060721
  Receipt Date: 20060710
  Transmission Date: 20061208
  Serious: Yes (Death)
  Sender: FDA-Public Use
  Company Number: US-JNJFOC-20060701773

PATIENT
  Sex: Female
  Weight: 89.36 kg

DRUGS (10)
  1. REMICADE [Suspect]
  2. REMICADE [Suspect]
  3. REMICADE [Suspect]
     Indication: RHEUMATOID ARTHRITIS
  4. PREDNISONE [Concomitant]
  5. ARAVA [Concomitant]
  6. VOLTAREN [Concomitant]
  7. LOZOL [Concomitant]
  8. BETAINE HYDROCHLORIDE [Concomitant]
  9. KLOR-CON [Concomitant]
  10. TOPROL-XL [Concomitant]

REACTIONS (1)
  - MENINGIOMA [None]
